FAERS Safety Report 14344524 (Version 1)
Quarter: 2018Q1

REPORT INFORMATION
  Report Type: Spontaneous
  Country: US (occurrence: US)
  Receive Date: 20180102
  Receipt Date: 20180102
  Transmission Date: 20180509
  Serious: No
  Sender: FDA-Public Use
  Company Number: US-PURDUE-USA-2017-0141160

PATIENT
  Sex: Female

DRUGS (8)
  1. MS CONTIN [Suspect]
     Active Substance: MORPHINE SULFATE
     Indication: ARTHRITIS
  2. MS CONTIN [Suspect]
     Active Substance: MORPHINE SULFATE
     Indication: SPINAL FUSION SURGERY
  3. MS CONTIN [Suspect]
     Active Substance: MORPHINE SULFATE
     Indication: INTERVERTEBRAL DISC DEGENERATION
  4. MS CONTIN [Suspect]
     Active Substance: MORPHINE SULFATE
     Indication: NERVE COMPRESSION
  5. MS CONTIN [Suspect]
     Active Substance: MORPHINE SULFATE
     Indication: SPINAL COLUMN STENOSIS
  6. MS CONTIN [Suspect]
     Active Substance: MORPHINE SULFATE
     Indication: PAIN
     Dosage: UNK MG, UNK
     Route: 065
  7. MS CONTIN [Suspect]
     Active Substance: MORPHINE SULFATE
     Indication: CARPAL TUNNEL SYNDROME
  8. MS CONTIN [Suspect]
     Active Substance: MORPHINE SULFATE
     Indication: SPINAL FUSION SURGERY

REACTIONS (1)
  - Drug effect decreased [Unknown]
